FAERS Safety Report 23048747 (Version 1)
Quarter: 2023Q4

REPORT INFORMATION
  Report Type: Spontaneous
  Country: US (occurrence: US)
  Receive Date: 20231010
  Receipt Date: 20231010
  Transmission Date: 20240110
  Serious: No
  Sender: FDA-Public Use
  Company Number: US-TEVA-2023-US-2929958

PATIENT
  Age: 62 Year
  Sex: Female

DRUGS (2)
  1. TORSEMIDE [Suspect]
     Active Substance: TORSEMIDE
     Indication: Product used for unknown indication
     Dosage: 20 MILLIGRAM DAILY; 20 MG
  2. TORSEMIDE [Suspect]
     Active Substance: TORSEMIDE
     Dosage: 40 MILLIGRAM DAILY;

REACTIONS (9)
  - Tinnitus [Unknown]
  - Myalgia [Unknown]
  - Muscle spasms [Unknown]
  - Dry mouth [Unknown]
  - Gout [Unknown]
  - Fatigue [Unknown]
  - Visual impairment [Unknown]
  - Pain [Unknown]
  - Apathy [Unknown]
